FAERS Safety Report 5024078-X (Version None)
Quarter: 2006Q2

REPORT INFORMATION
  Report Type: 
  Country: None (occurrence: None)
  Receive Date: 20060607
  Receipt Date: 20060512
  Transmission Date: 20061013
  Serious: Yes (Death)
  Sender: FDA-Public Use
  Company Number: 2006068403

PATIENT
  Age: 10 Year
  Sex: Female

DRUGS (10)
  1. FLAGYL [Suspect]
     Indication: ILL-DEFINED DISORDER
  2. CHILDREN'S MOTRIN [Suspect]
     Indication: PAIN
     Dates: end: 20040507
  3. MORPHINE [Concomitant]
  4. CODEINE [Concomitant]
  5. ACETAMINOPHEN [Concomitant]
  6. COLACE (DOCUSATE SODIUM) [Concomitant]
  7. PEPCID [Concomitant]
  8. DECADRON SRC [Concomitant]
  9. PROVENTIL TABLET (SALBUTAMOL SULFATE) [Concomitant]
  10. CEFEPIME [Concomitant]

REACTIONS (11)
  - BLOOD URINE PRESENT [None]
  - CARDIAC FAILURE [None]
  - DIABETES MELLITUS [None]
  - MULTI-ORGAN FAILURE [None]
  - PERIPHERAL ISCHAEMIA [None]
  - RENAL FAILURE [None]
  - RESPIRATORY FAILURE [None]
  - SEPTIC SHOCK [None]
  - STEVENS-JOHNSON SYNDROME [None]
  - TOXIC EPIDERMAL NECROLYSIS [None]
  - WOUND SECRETION [None]
